FAERS Safety Report 20962332 (Version 3)
Quarter: 2022Q3

REPORT INFORMATION
  Report Type: Spontaneous
  Country: US (occurrence: US)
  Receive Date: 20220615
  Receipt Date: 20220831
  Transmission Date: 20221027
  Serious: No
  Sender: FDA-Public Use
  Company Number: US-PFIZER INC-202200835946

PATIENT
  Age: 73 Year
  Sex: Male
  Weight: 95.25 kg

DRUGS (3)
  1. ATORVASTATIN CALCIUM [Suspect]
     Active Substance: ATORVASTATIN CALCIUM
     Indication: Blood cholesterol increased
     Dosage: 10 MG, 1X/DAY
  2. LISINOPRIL [Concomitant]
     Active Substance: LISINOPRIL
     Indication: Hypertension
     Dosage: 10 MG (10MG AT THE TIME AND HAS INCREASED TO 20MG NOW)
  3. LISINOPRIL [Concomitant]
     Active Substance: LISINOPRIL
     Dosage: 20 MG (10MG AT THE TIME AND HAS INCREASED TO 20MG NOW)

REACTIONS (2)
  - Muscle spasms [Unknown]
  - Mobility decreased [Unknown]
